FAERS Safety Report 10386039 (Version 1)
Quarter: 2014Q1

REPORT INFORMATION
  Report Type: Spontaneous
  Country: US (occurrence: None)
  Receive Date: 20140306
  Receipt Date: 20140306
  Transmission Date: 20141002
  Serious: Yes (Other)
  Sender: FDA-Public Use
  Company Number: 163-21880-13071157

PATIENT
  Age: 63 Year
  Sex: Female

DRUGS (9)
  1. REVLIMID ( LENALIDOMIDE) ( 25 MILLIGRAM, CAPSULES) [Suspect]
     Indication: PLASMA CELL MYELOMA
     Route: 048
     Dates: start: 20120110
  2. SINGULAIR (MONTELUKAST SODIUM) (TABLETS) [Concomitant]
  3. ALBUTEROL HFA (SALBUTAMOL) (INHALANT) [Concomitant]
  4. SYNTHROID (LEVOTHYROXINE SODIUM) (TABLETS) [Concomitant]
  5. CLEMASTINE FUMARATE (TABLETS) [Concomitant]
  6. CINNAMON (CINNAMOUM VERUM) (CAPSULES) [Concomitant]
  7. GLUTAMINE (LEVOGLUTAMIDE) (TABLETS) [Concomitant]
  8. CALCIUM PLUS VITAMIN D (CALCIUM D3 ^STADA^) (TABLETS) [Concomitant]
  9. VITAMIN D (ERGOCALCIFEROL) (TABLETS) [Concomitant]

REACTIONS (2)
  - Cognitive disorder [None]
  - Dry skin [None]
